FAERS Safety Report 9967008 (Version 2)
Quarter: 2014Q1

REPORT INFORMATION
  Report Type: Spontaneous
  Country: CN (occurrence: CN)
  Receive Date: 20140305
  Receipt Date: 20140312
  Transmission Date: 20141002
  Serious: Yes (Other)
  Sender: FDA-Public Use
  Company Number: CN-ASTRAZENECA-2014SE13734

PATIENT
  Age: 60 Year
  Sex: Female

DRUGS (6)
  1. SEROQUEL [Suspect]
     Indication: INSOMNIA
     Route: 048
     Dates: start: 201212
  2. SEROQUEL [Suspect]
     Indication: INSOMNIA
     Dosage: 1/3 TABLET OF 200 MG DAILY
     Route: 048
  3. SEROQUEL [Suspect]
     Indication: INSOMNIA
     Dosage: 1/16 TABLET OF 200 MG DAILY
     Route: 048
     Dates: start: 201403
  4. ZOPICLONE [Concomitant]
     Route: 048
     Dates: start: 201303
  5. MELATONIN [Concomitant]
     Route: 048
     Dates: start: 2013
  6. DIAZEPAM [Concomitant]
     Route: 048

REACTIONS (6)
  - Cerebral infarction [Recovered/Resolved]
  - Sleep disorder due to a general medical condition [Unknown]
  - Insomnia [Unknown]
  - Drug ineffective for unapproved indication [Unknown]
  - Intentional drug misuse [Unknown]
  - Off label use [Unknown]
